FAERS Safety Report 19188206 (Version 1)
Quarter: 2021Q2

REPORT INFORMATION
  Report Type: Spontaneous
  Country: US (occurrence: US)
  Receive Date: 20210427
  Receipt Date: 20210427
  Transmission Date: 20210717
  Serious: No
  Sender: FDA-Public Use
  Company Number: US-BEH-2021130711

PATIENT
  Sex: Female

DRUGS (8)
  1. PERCOCET [OXYCODONE HYDROCHLORIDE;OXYCODONE TEREPHTHALATE;PARACETAMOL] [Concomitant]
     Active Substance: ACETAMINOPHEN\OXYCODONE HYDROCHLORIDE\OXYCODONE TEREPHTHALATE
  2. VITAMIN B12 [HYDROXOCOBALAMIN ACETATE] [Concomitant]
  3. VITAMIN D [COLECALCIFEROL] [Concomitant]
     Active Substance: CHOLECALCIFEROL
  4. EFFEXOR [Concomitant]
     Active Substance: VENLAFAXINE HYDROCHLORIDE
  5. HIZENTRA [Suspect]
     Active Substance: HUMAN IMMUNOGLOBULIN G
     Indication: HYPER IGM SYNDROME
     Dosage: 12 GRAM, QW
     Route: 058
  6. CALCIUM 600 + D [Concomitant]
     Active Substance: CALCIUM\VITAMIN D
  7. MULTIPLE VITAMINS [Concomitant]
     Active Substance: VITAMINS
  8. IRON [Concomitant]
     Active Substance: IRON

REACTIONS (5)
  - No adverse event [Unknown]
  - Pruritus [Recovered/Resolved]
  - Recalled product administered [Unknown]
  - Off label use [Unknown]
  - Burning sensation [Recovered/Resolved]
